FAERS Safety Report 5704929-3 (Version None)
Quarter: 2008Q2

REPORT INFORMATION
  Report Type: 
  Country: None (occurrence: None)
  Receive Date: 20080414
  Receipt Date: 20080401
  Transmission Date: 20081010
  Serious: Yes (Hospitalization)
  Sender: FDA-Public Use
  Company Number: CA-SANOFI-SYNTHELABO-A01200803694

PATIENT
  Age: 83 Year
  Sex: Male

DRUGS (2)
  1. FLOMAX [Concomitant]
     Dosage: UNK
     Route: 048
  2. LEUPROLIDE ACETATE [Suspect]
     Dosage: 45 MG SC EVERY 6 MONTHS
     Route: 058
     Dates: start: 20080317, end: 20080317

REACTIONS (6)
  - BLOOD PRESSURE INCREASED [None]
  - CHEST PAIN [None]
  - HEART RATE INCREASED [None]
  - HYPOAESTHESIA [None]
  - NERVOUSNESS [None]
  - URINARY TRACT OBSTRUCTION [None]
